FAERS Safety Report 12315393 (Version 1)
Quarter: 2016Q2

REPORT INFORMATION
  Report Type: Spontaneous
  Country: TR (occurrence: TR)
  Receive Date: 20160428
  Receipt Date: 20160428
  Transmission Date: 20160815
  Serious: Yes (Disabling)
  Sender: FDA-Public Use
  Company Number: ALCN2016TR002775

PATIENT
  Age: 31 Year
  Sex: Male

DRUGS (3)
  1. FLAREX [Suspect]
     Active Substance: FLUOROMETHOLONE ACETATE
     Indication: ADENOVIRUS INFECTION
     Dosage: 1, GTT, TID
     Route: 047
  2. FLAREX [Suspect]
     Active Substance: FLUOROMETHOLONE ACETATE
     Dosage: 1 GTT, BID
     Route: 047
  3. RESTASIS [Concomitant]
     Active Substance: CYCLOSPORINE
     Indication: ADENOVIRUS INFECTION
     Dosage: 1 GTT, BID
     Route: 047

REACTIONS (6)
  - Photosensitivity reaction [Unknown]
  - Eye irritation [Unknown]
  - Visual acuity reduced [Unknown]
  - Vital dye staining cornea present [Not Recovered/Not Resolved]
  - Corneal thinning [Not Recovered/Not Resolved]
  - Eye pain [Unknown]
